FAERS Safety Report 19716076 (Version 1)
Quarter: 2021Q3

REPORT INFORMATION
  Report Type: Spontaneous
  Country: JP (occurrence: JP)
  Receive Date: 20210819
  Receipt Date: 20210819
  Transmission Date: 20211014
  Serious: Yes (Death, Hospitalization)
  Sender: FDA-Public Use
  Company Number: JP-STRIDES ARCOLAB LIMITED-2021SP026555

PATIENT
  Age: 90 Year
  Sex: Female

DRUGS (6)
  1. IMATINIB. [Suspect]
     Active Substance: IMATINIB MESYLATE
     Indication: GASTROINTESTINAL STROMAL TUMOUR
     Dosage: 200 MILLIGRAM PER DAY, HALF DOSE
     Route: 065
  2. IMATINIB. [Suspect]
     Active Substance: IMATINIB MESYLATE
     Dosage: DOSE WAS REDUCED TO 200 MG/ DAY
     Route: 065
  3. PREDNISOLONE. [Suspect]
     Active Substance: PREDNISOLONE
     Indication: GASTROINTESTINAL STROMAL TUMOUR
     Dosage: 10 MILLIGRAM PER DAY
     Route: 065
  4. IMATINIB. [Suspect]
     Active Substance: IMATINIB MESYLATE
     Dosage: 200 MG/DAY WAS RESTARTED
     Route: 065
  5. IMATINIB. [Suspect]
     Active Substance: IMATINIB MESYLATE
     Indication: GASTRIC CANCER
     Dosage: INCREASED TO 300 MILLIGRAM PER DAY
     Route: 065
  6. PREDNISOLONE. [Suspect]
     Active Substance: PREDNISOLONE
     Indication: GASTRIC CANCER
     Dosage: 5 MILLIGRAM PER DAY
     Route: 065

REACTIONS (3)
  - Pneumocystis jirovecii infection [Fatal]
  - Rash [Unknown]
  - Oedema peripheral [Unknown]
